FAERS Safety Report 16140338 (Version 1)
Quarter: 2019Q1

REPORT INFORMATION
  Report Type: Spontaneous
  Country: US (occurrence: US)
  Receive Date: 20190226
  Receipt Date: 20190226
  Transmission Date: 20190418
  Serious: Yes (Death, Hospitalization, Other)
  Sender: FDA-Public Use
  Company Number: None

PATIENT
  Age: 64 Year
  Sex: Male
  Weight: 102.06 kg

DRUGS (8)
  1. TAMSULOSIN [Concomitant]
     Active Substance: TAMSULOSIN
  2. AMLODIPINE [Concomitant]
     Active Substance: AMLODIPINE BESYLATE
  3. CALCIUM VIT D SUPPLEMENTS [Concomitant]
  4. XTANDI [Suspect]
     Active Substance: ENZALUTAMIDE
     Indication: PROSTATIC SPECIFIC ANTIGEN ABNORMAL
     Dosage: ?          QUANTITY:40 MG 4 CAPS/DAY;?
     Route: 048
     Dates: start: 20180110, end: 20180502
  5. XTANDI [Suspect]
     Active Substance: ENZALUTAMIDE
     Indication: PROSTATE CANCER METASTATIC
     Dosage: ?          QUANTITY:40 MG 4 CAPS/DAY;?
     Route: 048
     Dates: start: 20180110, end: 20180502
  6. TRIAMTERINE HCTZ [Concomitant]
  7. METOPROLOL. [Concomitant]
     Active Substance: METOPROLOL
  8. ASA LO DOSE [Concomitant]

REACTIONS (2)
  - Hypertensive crisis [None]
  - Malignant neoplasm progression [None]

NARRATIVE: CASE EVENT DATE: 20180324
